FAERS Safety Report 5458051-4 (Version None)
Quarter: 2007Q3

REPORT INFORMATION
  Report Type: 
  Country: None (occurrence: None)
  Receive Date: 20070919
  Receipt Date: 20070907
  Transmission Date: 20080115
  Serious: Yes (Other)
  Sender: FDA-Public Use
  Company Number: PHEH2007US12176

PATIENT
  Sex: Male

DRUGS (2)
  1. ZELNORM [Suspect]
     Indication: IRRITABLE BOWEL SYNDROME
     Dosage: 6 MG, BID
     Dates: start: 20060901
  2. HYDROCORTISONE [Concomitant]

REACTIONS (5)
  - CHOLECYSTECTOMY [None]
  - CONSTIPATION [None]
  - DIARRHOEA [None]
  - GALLBLADDER DISORDER [None]
  - GASTROINTESTINAL PAIN [None]
